FAERS Safety Report 12447836 (Version 1)
Quarter: 2016Q2

REPORT INFORMATION
  Report Type: Spontaneous
  Country: DK (occurrence: NO)
  Receive Date: 20160608
  Receipt Date: 20160608
  Transmission Date: 20160815
  Serious: Yes (Life-Threatening, Hospitalization)
  Sender: FDA-Public Use
  Company Number: NO-FRI-1000085088

PATIENT
  Age: 91 Year
  Sex: Female

DRUGS (6)
  1. XARELTO [Interacting]
     Active Substance: RIVAROXABAN
     Indication: ATRIAL FIBRILLATION
     Dosage: 15 MG
     Route: 048
     Dates: start: 20140113, end: 20160503
  2. XALATAN [Concomitant]
     Active Substance: LATANOPROST
     Indication: GLAUCOMA
     Dosage: 1 GTT
     Route: 047
     Dates: start: 20140113
  3. FOTIL FORTE [Concomitant]
     Indication: GLAUCOMA
     Dosage: 2 GTT
     Route: 047
     Dates: start: 20140113
  4. NYCOPLUS MAGNESIUM [Concomitant]
     Indication: HYPOMAGNESAEMIA
     Dosage: 240 MG
     Route: 048
     Dates: start: 20150816, end: 20160510
  5. DONEPEZIL. [Concomitant]
     Active Substance: DONEPEZIL
     Indication: DEMENTIA
     Dosage: 10 MG
     Route: 048
     Dates: end: 201605
  6. CITALOPRAM [Suspect]
     Active Substance: CITALOPRAM HYDROBROMIDE
     Indication: DEPRESSION
     Dosage: 20 MG
     Route: 048
     Dates: start: 20150727, end: 20160510

REACTIONS (2)
  - Drug interaction [Unknown]
  - Cerebral haemorrhage [Recovered/Resolved with Sequelae]

NARRATIVE: CASE EVENT DATE: 20160503
